FAERS Safety Report 5864271-7 (Version None)
Quarter: 2008Q3

REPORT INFORMATION
  Report Type: 
  Country: None (occurrence: None)
  Receive Date: 20080829
  Receipt Date: 20080819
  Transmission Date: 20090109
  Serious: Yes (Other)
  Sender: FDA-Public Use
  Company Number: US-AMGEN-QUU302388

PATIENT
  Age: 62 Year
  Sex: Female

DRUGS (3)
  1. NEUPOGEN [Suspect]
     Indication: CHEMOTHERAPY
     Dates: start: 20080818
  2. DOXORUBICIN HYDROCHLORIDE [Concomitant]
  3. CYTOGAM [Concomitant]

REACTIONS (2)
  - BONE PAIN [None]
  - PAIN [None]
